FAERS Safety Report 17317176 (Version 1)
Quarter: 2020Q1

REPORT INFORMATION
  Report Type: Spontaneous
  Country: GB (occurrence: GB)
  Receive Date: 20200124
  Receipt Date: 20200124
  Transmission Date: 20200409
  Serious: Yes (Life-Threatening, Disabling, Other)
  Sender: FDA-Public Use
  Company Number: GB-MYLANLABS-2019M1060097

PATIENT
  Age: 55 Year
  Sex: Female
  Weight: 65 kg

DRUGS (4)
  1. CYCLOPHOSPHAMIDE. [Suspect]
     Active Substance: CYCLOPHOSPHAMIDE
     Indication: BREAST CANCER
     Dosage: 4 TREATMENT ROUNDS
     Route: 065
     Dates: start: 20010911
  2. EPIRUBICIN [Suspect]
     Active Substance: EPIRUBICIN
     Indication: BREAST CANCER
     Dosage: ONE TREATMENT ROUND
     Route: 051
     Dates: start: 20060911
  3. EPIRUBICIN [Suspect]
     Active Substance: EPIRUBICIN
     Dosage: ONE TREATMENT ROUND
     Route: 051
     Dates: start: 2007
  4. DOXORUBICIN [Suspect]
     Active Substance: DOXORUBICIN
     Indication: BREAST CANCER
     Dosage: I HAD 4 TREATMENT ROUNDS.
     Route: 051
     Dates: start: 20010911

REACTIONS (6)
  - Palpitations [Unknown]
  - Extrasystoles [Unknown]
  - Anxiety [Unknown]
  - Dizziness [Unknown]
  - Panic attack [Unknown]
  - Cardiac failure [Not Recovered/Not Resolved]

NARRATIVE: CASE EVENT DATE: 20160830
